FAERS Safety Report 6960581-0 (Version None)
Quarter: 2010Q3

REPORT INFORMATION
  Report Type: 
  Country: None (occurrence: None)
  Receive Date: 20100901
  Receipt Date: 20100823
  Transmission Date: 20110219
  Serious: Yes (Hospitalization)
  Sender: FDA-Public Use
  Company Number: FR-PFIZER INC-2010105875

PATIENT
  Age: 87 Year
  Sex: Female

DRUGS (11)
  1. CEFPODOXIME PROXETIL [Suspect]
     Dosage: 100 MG, 2X/DAY
     Route: 048
     Dates: start: 20100407, end: 20100412
  2. INDAPAMIDE [Suspect]
     Dosage: 1.5 MG, DAILY
     Route: 048
     Dates: end: 20100414
  3. FLUOXETINE [Suspect]
     Dosage: 20 MG, DAILY
     Route: 048
     Dates: start: 20070101, end: 20100414
  4. FORLAX [Suspect]
     Dosage: UNK
     Route: 048
     Dates: start: 20100223
  5. PROPOFAN [Concomitant]
  6. ACTONEL [Concomitant]
     Dosage: 35 MG, WEEKLY
  7. IDEOS [Concomitant]
     Dosage: 500 MG, 1X/DAY
  8. KARDEGIC [Concomitant]
     Dosage: 75 MG, 1X/DAY
  9. INIPOMP [Concomitant]
     Dosage: 20 MG, 1X/DAY
  10. LORAZEPAM [Concomitant]
     Dosage: 1 MG, 1X/DAY
  11. BETAHISTINE [Concomitant]
     Dosage: 24 MG, 1X/DAY

REACTIONS (4)
  - DIARRHOEA [None]
  - FALL [None]
  - HYPOKALAEMIA [None]
  - HYPONATRAEMIA [None]
